FAERS Safety Report 20394716 (Version 4)
Quarter: 2022Q2

REPORT INFORMATION
  Report Type: Report from Study
  Country: None (occurrence: CN)
  Receive Date: 20220129
  Receipt Date: 20220430
  Transmission Date: 20220721
  Serious: Yes (Hospitalization)
  Sender: FDA-Public Use
  Company Number: CN-Jiangsu Hengrui Medicine Co., Ltd.-2124431

PATIENT
  Age: 68 Year
  Sex: Female
  Weight: 47 kg

DRUGS (4)
  1. LETROZOLE [Suspect]
     Active Substance: LETROZOLE
     Indication: Invasive ductal breast carcinoma
     Route: 048
     Dates: start: 20201027, end: 20220225
  2. INVESTIGATIONAL PRODUCT [Suspect]
     Active Substance: INVESTIGATIONAL PRODUCT
     Route: 050
     Dates: start: 20201027
  3. GLICLAZIDE [Concomitant]
     Active Substance: GLICLAZIDE
  4. LEVAMLODIPINE BESYLATE [Concomitant]
     Active Substance: LEVAMLODIPINE BESYLATE

REACTIONS (1)
  - Pneumonia [Recovered/Resolved]

NARRATIVE: CASE EVENT DATE: 20220120
